FAERS Safety Report 17125498 (Version 3)
Quarter: 2021Q3

REPORT INFORMATION
  Report Type: Other
  Country: JP (occurrence: JP)
  Receive Date: 20191207
  Receipt Date: 20210803
  Transmission Date: 20211014
  Serious: Yes (Other)
  Sender: FDA-Public Use
  Company Number: JP-ROCHE-2490725

PATIENT
  Age: 55 Year
  Sex: Female

DRUGS (6)
  1. AVASTIN [Suspect]
     Active Substance: BEVACIZUMAB
     Indication: OVARIAN CANCER
     Dosage: 15 MG/KG ON DAY 1, 21?DAY CYCLE
     Route: 065
  2. ELTROMBOPAG [Concomitant]
     Active Substance: ELTROMBOPAG
     Indication: IMMUNE THROMBOCYTOPENIA
     Dosage: THE FRACTIONATION DOSE FREQUENCY IS UNCERTAIN.
     Route: 048
  3. PACLITAXEL. [Concomitant]
     Active Substance: PACLITAXEL
  4. CARBOPLATIN. [Concomitant]
     Active Substance: CARBOPLATIN
     Dosage: CBDCA WAS ADMINISTERED AT AN (AREA UNDER CURVE) AUC OF 6 ON DAY 1, 21?DAY CYCLE
  5. ELTROMBOPAG [Concomitant]
     Active Substance: ELTROMBOPAG
     Dosage: FIVE DAYS BEFORE AND BEHIND A FRACTIONATION DOSE UNCERTAIN FREQUENCY AND D1.
     Route: 048
  6. GEMCITABINE. [Suspect]
     Active Substance: GEMCITABINE
     Indication: OVARIAN CANCER
     Dosage: 1000 MG/M2 ON DAY 1 AND DAY 8
     Route: 065

REACTIONS (1)
  - Platelet count decreased [Unknown]
